FAERS Safety Report 22246168 (Version 1)
Quarter: 2023Q2

REPORT INFORMATION
  Report Type: Spontaneous
  Country: US (occurrence: None)
  Receive Date: 20230423
  Receipt Date: 20230423
  Transmission Date: 20230722
  Serious: Yes (Hospitalization, Disabling, Other)
  Sender: FDA-Public Use
  Company Number: None

PATIENT
  Age: 26 Year
  Sex: Female
  Weight: 54.43 kg

DRUGS (5)
  1. MIRENA [Suspect]
     Active Substance: LEVONORGESTREL
  2. LEVOTHYROXINE [Concomitant]
     Active Substance: LEVOTHYROXINE
  3. TRAMADOL [Concomitant]
     Active Substance: TRAMADOL
  4. ALEVE [Concomitant]
     Active Substance: NAPROXEN SODIUM
  5. ultra inflam actin [Concomitant]

REACTIONS (27)
  - Complication associated with device [None]
  - Uterine spasm [None]
  - Neuralgia [None]
  - Back pain [None]
  - Crying [None]
  - Hyperhidrosis [None]
  - Hyperventilation [None]
  - Pain [None]
  - Pain [None]
  - Arthralgia [None]
  - Mobility decreased [None]
  - Musculoskeletal stiffness [None]
  - Gait disturbance [None]
  - Medial tibial stress syndrome [None]
  - Muscle spasms [None]
  - Neck pain [None]
  - Headache [None]
  - Spinal pain [None]
  - Migraine [None]
  - Photosensitivity reaction [None]
  - Hyperacusis [None]
  - Muscle tightness [None]
  - Joint noise [None]
  - Abdominal pain upper [None]
  - Blood pressure increased [None]
  - Blood urine present [None]
  - White blood cell count increased [None]

NARRATIVE: CASE EVENT DATE: 20230406
